FAERS Safety Report 5806168-4 (Version None)
Quarter: 2008Q3

REPORT INFORMATION
  Report Type: 
  Country: None (occurrence: None)
  Receive Date: 20080710
  Receipt Date: 20080707
  Transmission Date: 20090109
  Serious: Yes (Death, Life-Threatening, Hospitalization, Other)
  Sender: FDA-Public Use
  Company Number: DE-BRISTOL-MYERS SQUIBB COMPANY-14244081

PATIENT
  Age: 45 Year
  Sex: Female
  Weight: 63 kg

DRUGS (4)
  1. TAXOL [Suspect]
     Indication: BREAST CANCER
     Dates: start: 20070701, end: 20080318
  2. BEVACIZUMAB [Suspect]
     Indication: BREAST CANCER
     Dates: start: 20070701, end: 20080318
  3. TAMOXIFEN CITRATE [Concomitant]
     Indication: BREAST CANCER
     Dates: start: 20050301
  4. LETROZOLE [Concomitant]
     Indication: BREAST CANCER

REACTIONS (3)
  - GASTRITIS [None]
  - GASTROINTESTINAL HAEMORRHAGE [None]
  - HEPATIC CIRRHOSIS [None]
